FAERS Safety Report 5706533-X (Version None)
Quarter: 2008Q2

REPORT INFORMATION
  Report Type: 
  Country: None (occurrence: None)
  Receive Date: 20080414
  Receipt Date: 20080403
  Transmission Date: 20081010
  Serious: Yes (Other)
  Sender: FDA-Public Use
  Company Number: OPER20080066

PATIENT
  Sex: Male

DRUGS (1)
  1. OPANA ER [Suspect]
     Dosage: 40 MG

REACTIONS (5)
  - DRUG ABUSE [None]
  - DRUG WITHDRAWAL SYNDROME [None]
  - EUPHORIC MOOD [None]
  - INTENTIONAL DRUG MISUSE [None]
  - SELF-MEDICATION [None]
